FAERS Safety Report 18365608 (Version 1)
Quarter: 2020Q4

REPORT INFORMATION
  Report Type: Report from Study
  Country: US (occurrence: US)
  Receive Date: 20201009
  Receipt Date: 20201009
  Transmission Date: 20210114
  Serious: Yes (Other)
  Sender: FDA-Public Use
  Company Number: US-SUNOVION-2020SUN002867

PATIENT
  Age: 49 Year
  Sex: Female

DRUGS (1)
  1. KYNMOBI [Suspect]
     Active Substance: APOMORPHINE HYDROCHLORIDE
     Indication: PARKINSON^S DISEASE
     Dosage: 10 MG, SINGLE
     Route: 060
     Dates: start: 20200928

REACTIONS (5)
  - Hyperhidrosis [Unknown]
  - Hypotension [Unknown]
  - Illness [Unknown]
  - Nausea [Unknown]
  - Muscle spasms [Unknown]
